FAERS Safety Report 6101475-2 (Version None)
Quarter: 2009Q1

REPORT INFORMATION
  Report Type: 
  Country: None (occurrence: None)
  Receive Date: 20090303
  Receipt Date: 20090303
  Transmission Date: 20090719
  Serious: Yes (Other)
  Sender: FDA-Public Use
  Company Number: None

PATIENT
  Age: 31 Year
  Sex: Male
  Weight: 89.8122 kg

DRUGS (1)
  1. VYVANSE [Suspect]
     Indication: ATTENTION DEFICIT/HYPERACTIVITY DISORDER
     Dosage: 2 PILLS ONCE PER DAY PO
     Route: 048
     Dates: start: 20080202, end: 20080228

REACTIONS (4)
  - EXCESSIVE MASTURBATION [None]
  - IMPAIRED WORK ABILITY [None]
  - LIBIDO INCREASED [None]
  - THINKING ABNORMAL [None]
